APPROVED DRUG PRODUCT: METHADOSE
Active Ingredient: METHADONE HYDROCHLORIDE
Strength: 10MG/ML
Dosage Form/Route: CONCENTRATE;ORAL
Application: N017116 | Product #002 | TE Code: AA
Applicant: SPECGX LLC
Approved: Approved Prior to Jan 1, 1982 | RLD: Yes | RS: Yes | Type: RX